FAERS Safety Report 20547119 (Version 3)
Quarter: 2022Q3

REPORT INFORMATION
  Report Type: Report from Study
  Country: NL (occurrence: NL)
  Receive Date: 20220303
  Receipt Date: 20220815
  Transmission Date: 20221027
  Serious: Yes (Other)
  Sender: FDA-Public Use
  Company Number: NL-PFIZER INC-202200306304

PATIENT
  Age: 4 Week
  Sex: Female

DRUGS (5)
  1. SIROLIMUS [Suspect]
     Active Substance: SIROLIMUS
     Indication: Angiosarcoma
     Dosage: 0.1 MG, EVERY 48 H
  2. SIROLIMUS [Suspect]
     Active Substance: SIROLIMUS
     Indication: Haemangioma-thrombocytopenia syndrome
  3. PREDNISONE [Concomitant]
     Active Substance: PREDNISONE
     Indication: Angiosarcoma
     Dosage: UNK
  4. PREDNISONE [Concomitant]
     Active Substance: PREDNISONE
     Indication: Haemangioma-thrombocytopenia syndrome
  5. COTRIMOXAZOLE [Concomitant]
     Active Substance: SULFAMETHOXAZOLE\TRIMETHOPRIM
     Indication: Prophylaxis
     Dosage: UNK

REACTIONS (11)
  - Neonatal pneumonia [Unknown]
  - Lymphocytopenia neonatal [Unknown]
  - Diarrhoea neonatal [Unknown]
  - Hypertriglyceridaemia [Unknown]
  - Hypophosphataemia [Unknown]
  - Upper respiratory tract infection [Unknown]
  - Viral infection [Unknown]
  - Gastroenteritis [Unknown]
  - Aphthous ulcer [Unknown]
  - Anaemia neonatal [Unknown]
  - Hepatic enzyme increased [Unknown]
